FAERS Safety Report 21689343 (Version 5)
Quarter: 2024Q1

REPORT INFORMATION
  Report Type: Spontaneous
  Country: CA (occurrence: CA)
  Receive Date: 20221206
  Receipt Date: 20240129
  Transmission Date: 20240410
  Serious: Yes (Other)
  Sender: FDA-Public Use
  Company Number: CA-ANIPHARMA-2020-CA-001604

PATIENT
  Age: 72 Year
  Sex: Female

DRUGS (35)
  1. CANDESARTAN CILEXETIL [Suspect]
     Active Substance: CANDESARTAN CILEXETIL
     Indication: Product used for unknown indication
     Dosage: 20 MG UNK / 25 MG DAILY
     Route: 048
  2. NAPROXEN [Concomitant]
     Active Substance: NAPROXEN
     Dosage: DOSE TEXT: 500 MG UNKNOWN / DOSE: UNK
     Route: 048
  3. FLUTICASONE FUROATE [Concomitant]
     Active Substance: FLUTICASONE FUROATE
     Dosage: 1 DF DAILY
     Route: 045
  4. CLIMARA [Concomitant]
     Active Substance: ESTRADIOL
     Dosage: DOSE TEXT: 1 DF ONCE A WEEK / DOSE: 1 DF WEEK
     Route: 065
  5. DULOXETINE HYDROCHLORIDE [Suspect]
     Active Substance: DULOXETINE HYDROCHLORIDE
     Route: 065
  6. EURO DOCUSATE C [Concomitant]
     Dosage: DOSE TEXT: 2 DF TWO TIMES A DAY
     Route: 048
  7. LANSOPRAZOLE [Concomitant]
     Active Substance: LANSOPRAZOLE
     Dosage: 30 MG
     Route: 048
  8. LYRICA [Concomitant]
     Active Substance: PREGABALIN
     Dosage: DOSE TEXT: 75 MG / DOSE TEXT: 50 MG UNKNOWN / DOSE TEXT: 25 MG TWO TIMES A DAY / DOSE TEXT: 75 MG (A
     Route: 048
     Dates: start: 2018
  9. NAPROXEN [Concomitant]
     Active Substance: NAPROXEN
     Dosage: 500 MG TWO TIMES A DAY / DOSE: UNK / 2 EVERY 1 DAYS / 2 EVERY 1 DAYS
     Route: 048
  10. AMLODIPINE [Concomitant]
     Active Substance: AMLODIPINE BESYLATE
     Dosage: 5 MG EVERY DAY / DOSE: UNK
     Route: 048
  11. ROSUVASTATIN [Concomitant]
     Active Substance: ROSUVASTATIN
     Dosage: DOSE: 5 MG DAILY / DOSE:10 MG DAILY / DOSE: 10 MG DAILY
     Route: 048
  12. SYNTHROID [Suspect]
     Active Substance: LEVOTHYROXINE SODIUM
     Dosage: 0.05 MG EVERY DAY
     Route: 048
  13. TYLENOL [Suspect]
     Active Substance: ACETAMINOPHEN
     Route: 065
  14. .ALPHA.-TOCOPHEROL, D- [Concomitant]
     Active Substance: .ALPHA.-TOCOPHEROL, D-
     Dosage: 400 IU UNK
     Route: 065
     Dates: start: 201610
  15. EFFEXOR [Concomitant]
     Active Substance: VENLAFAXINE HYDROCHLORIDE
     Route: 065
  16. AMOXICILLIN\CLAVULANATE POTASSIUM [Concomitant]
     Active Substance: AMOXICILLIN\CLAVULANATE POTASSIUM
     Route: 065
  17. ASPIRIN [Concomitant]
     Active Substance: ASPIRIN
     Dosage: 80 MG EVERY DAY
     Route: 048
  18. POLYETHYLENE GLYCOL 3350 [Concomitant]
     Active Substance: POLYETHYLENE GLYCOL 3350
     Dosage: 17 G
     Route: 048
  19. RIVA-CYCLOPRINE [Concomitant]
     Dosage: UNKNOWN DOSE EVERY ONE HOUR
     Route: 065
  20. POLYETHYLENE GLYCOLS [Concomitant]
     Active Substance: POLYETHYLENE GLYCOLS
     Dosage: 2 EVERY 1 DAYS
     Route: 048
  21. AMLODIPINE BESYLATE [Concomitant]
     Active Substance: AMLODIPINE BESYLATE
     Dosage: 1 DF DAILY; 5MG EVERY DAY
     Route: 048
  22. ATENOLOL [Concomitant]
     Active Substance: ATENOLOL
     Dosage: DOSE TEXT: 25 MG UNKNOWN / DOSE TEXT: 30 MG AS REQUIRED
     Route: 048
  23. ATENOLOL [Suspect]
     Active Substance: ATENOLOL
     Route: 048
  24. ASPIRIN [Concomitant]
     Active Substance: ASPIRIN
     Dosage: 1 DF DAILY
     Route: 048
  25. AMITRIPTYLINE HYDROCHLORIDE [Concomitant]
     Active Substance: AMITRIPTYLINE HYDROCHLORIDE
     Route: 048
  26. AMITRIPTYLINE HYDROCHLORIDE [Concomitant]
     Active Substance: AMITRIPTYLINE HYDROCHLORIDE
     Route: 048
  27. FLEXERIL [Concomitant]
     Active Substance: CYCLOBENZAPRINE HYDROCHLORIDE
     Route: 048
  28. VENLAFAXINE HYDROCHLORIDE [Concomitant]
     Active Substance: VENLAFAXINE HYDROCHLORIDE
     Route: 065
  29. ROSUVASTATIN CALCIUM [Concomitant]
     Active Substance: ROSUVASTATIN CALCIUM
     Route: 065
  30. BUDESONIDE [Concomitant]
     Active Substance: BUDESONIDE
     Route: 065
  31. CYMBALTA [Concomitant]
     Active Substance: DULOXETINE HYDROCHLORIDE
     Route: 065
  32. ESTRADIOL\NORETHINDRONE ACETATE [Suspect]
     Active Substance: ESTRADIOL\NORETHINDRONE ACETATE
     Dosage: DOSE TEXT: 1 DF EVERY TWO WEEKS
     Route: 065
  33. SANDOSTATIN [Suspect]
     Active Substance: OCTREOTIDE ACETATE
     Dosage: DOSE TEXT: 100 UG THREE TIMES A DAY / DOSE TEXT: 30 MG MONTHLY / DOSE TEXT: 60 MG EVERY FOUR WEEKS
     Route: 058
     Dates: start: 201710
  34. SANDOSTATIN LAR DEPOT [Suspect]
     Active Substance: OCTREOTIDE ACETATE
     Dosage: DOSE TEXT: 30 MG MONTHLY
     Route: 030
     Dates: start: 20160707
  35. CANDESARTAN CILEXETIL\HYDROCHLOROTHIAZIDE [Concomitant]
     Active Substance: CANDESARTAN CILEXETIL\HYDROCHLOROTHIAZIDE
     Dosage: UNKNOWN DOSE EVERY DAY
     Route: 048

REACTIONS (35)
  - Constipation [Unknown]
  - Nausea [Unknown]
  - Somnolence [Unknown]
  - Back pain [Unknown]
  - Pruritus [Unknown]
  - Renal impairment [Unknown]
  - Abdominal distension [Unknown]
  - Abdominal pain [Unknown]
  - Abdominal pain lower [Unknown]
  - Acne [Unknown]
  - Body temperature decreased [Unknown]
  - Bursitis [Unknown]
  - Contusion [Unknown]
  - Hot flush [Unknown]
  - Hypokinesia [Unknown]
  - Musculoskeletal pain [Unknown]
  - Productive cough [Unknown]
  - Rhinorrhoea [Unknown]
  - Sinusitis [Unknown]
  - Blood potassium decreased [Unknown]
  - Drug hypersensitivity [Unknown]
  - Diarrhoea [Unknown]
  - Gingival abscess [Unknown]
  - Product administration error [Unknown]
  - Incorrect dose administered [Unknown]
  - Blood pressure systolic increased [Unknown]
  - Headache [Not Recovered/Not Resolved]
  - Pneumonia [Unknown]
  - Application site reaction [Unknown]
  - Dizziness [Unknown]
  - Dyspnoea [Unknown]
  - Erythema [Unknown]
  - Fatigue [Unknown]
  - Heart rate decreased [Unknown]
  - Hypotension [Unknown]

NARRATIVE: CASE EVENT DATE: 20090901
